FAERS Safety Report 10083353 (Version 1)
Quarter: 2014Q2

REPORT INFORMATION
  Report Type: Spontaneous
  Country: US (occurrence: None)
  Receive Date: 20140415
  Receipt Date: 20140415
  Transmission Date: 20141212
  Serious: Yes (Other)
  Sender: FDA-Public Use
  Company Number: None

PATIENT
  Age: 24 Year
  Sex: Female

DRUGS (1)
  1. ALBUTEROL [Suspect]
     Indication: ASTHMA
     Dosage: NEBULIZED TREATMENT
     Route: 055

REACTIONS (5)
  - Tremor [None]
  - Dysphemia [None]
  - Balance disorder [None]
  - Gait disturbance [None]
  - Dyspnoea [None]
